FAERS Safety Report 7908136-5 (Version None)
Quarter: 2011Q4

REPORT INFORMATION
  Report Type: 
  Country: None (occurrence: None)
  Receive Date: 20111111
  Receipt Date: 20111104
  Transmission Date: 20120403
  Serious: No
  Sender: FDA-Public Use
  Company Number: US-BIOGENIDEC-2011BI025308

PATIENT
  Age: 58 Year
  Sex: Male

DRUGS (1)
  1. TYSABRI [Suspect]
     Indication: MULTIPLE SCLEROSIS
     Route: 042
     Dates: start: 20110117

REACTIONS (6)
  - JOINT INJURY [None]
  - MULTIPLE SCLEROSIS RELAPSE [None]
  - FALL [None]
  - DRUG EFFECT DECREASED [None]
  - RIB FRACTURE [None]
  - FATIGUE [None]
